FAERS Safety Report 13128473 (Version 1)
Quarter: 2017Q1

REPORT INFORMATION
  Report Type: Spontaneous
  Country: US (occurrence: US)
  Receive Date: 20170118
  Receipt Date: 20170118
  Transmission Date: 20170428
  Serious: Yes (Other)
  Sender: FDA-Public Use
  Company Number: US-INTERPRAG-PM-OCA2016-00325

PATIENT

DRUGS (4)
  1. OCALIVA [Suspect]
     Active Substance: OBETICHOLIC ACID
     Dosage: 5 MG, EVERY OTHER DAY
     Route: 048
     Dates: start: 2016, end: 201612
  2. OCALIVA [Suspect]
     Active Substance: OBETICHOLIC ACID
     Indication: DRUG INEFFECTIVE
     Dosage: 5 MG, QD
     Route: 048
     Dates: start: 201610, end: 201612
  3. XIFAXAN [Concomitant]
     Active Substance: RIFAXIMIN
     Dosage: 550 MG, BID
     Route: 048
     Dates: start: 201608
  4. LACTULOSE. [Concomitant]
     Active Substance: LACTULOSE
     Dosage: UNK
     Dates: start: 201608

REACTIONS (10)
  - Encephalopathy [Not Recovered/Not Resolved]
  - Blood alkaline phosphatase increased [Unknown]
  - Transaminases abnormal [Unknown]
  - Hepatic cirrhosis [Unknown]
  - Pruritus [Recovering/Resolving]
  - Asterixis [Recovering/Resolving]
  - Fluid retention [Unknown]
  - Night sweats [Unknown]
  - Somnolence [Unknown]
  - Decreased appetite [Unknown]

NARRATIVE: CASE EVENT DATE: 2016
